FAERS Safety Report 11709572 (Version 2)
Quarter: 2015Q4

REPORT INFORMATION
  Report Type: Spontaneous
  Country: US (occurrence: US)
  Receive Date: 20151104
  Receipt Date: 20151110
  Transmission Date: 20160304
  Serious: No
  Sender: FDA-Public Use
  Company Number: US-ELI_LILLY_AND_COMPANY-US201104002286

PATIENT
  Sex: Female

DRUGS (3)
  1. FORTEO [Suspect]
     Active Substance: TERIPARATIDE
     Indication: OSTEOPOROSIS
     Dosage: 20 UG, QD
     Route: 065
  2. FORTEO [Suspect]
     Active Substance: TERIPARATIDE
     Dosage: 20 UG, QD
  3. FORTEO [Suspect]
     Active Substance: TERIPARATIDE
     Dosage: 20 UG, QD

REACTIONS (17)
  - Dry eye [Unknown]
  - Tendon disorder [Unknown]
  - Contusion [Unknown]
  - Pain [Not Recovered/Not Resolved]
  - Muscle disorder [Unknown]
  - Osteoarthritis [Unknown]
  - Weight decreased [Unknown]
  - Eye disorder [Unknown]
  - Injection site bruising [Unknown]
  - Arthralgia [Unknown]
  - Feeling abnormal [Not Recovered/Not Resolved]
  - Vision blurred [Unknown]
  - Decreased appetite [Unknown]
  - Bronchial disorder [Unknown]
  - Asthma [Unknown]
  - Muscle spasms [Unknown]
  - Pain in extremity [Not Recovered/Not Resolved]
